FAERS Safety Report 5278599-5 (Version None)
Quarter: 2007Q1

REPORT INFORMATION
  Report Type: 
  Country: None (occurrence: None)
  Receive Date: 20070328
  Receipt Date: 20070323
  Transmission Date: 20070707
  Serious: Yes (Hospitalization)
  Sender: FDA-Public Use
  Company Number: US-GLAXOSMITHKLINE-A0644374A

PATIENT
  Age: 63 Year
  Sex: Female

DRUGS (5)
  1. PARNATE [Suspect]
     Indication: DEPRESSION
     Dosage: 200MG PER DAY
     Route: 048
  2. LIDOCAINE [Suspect]
     Indication: DENTAL OPERATION
     Route: 065
  3. UNSPECIFIED MEDICATION [Suspect]
     Indication: DENTAL OPERATION
     Route: 042
  4. THYROLAR-3 [Concomitant]
  5. DEXTROAMPHETAMINE SULFATE [Concomitant]

REACTIONS (4)
  - AMNESIA [None]
  - DYSSTASIA [None]
  - INCOHERENT [None]
  - OVERDOSE [None]
